FAERS Safety Report 5311452-7 (Version None)
Quarter: 2007Q2

REPORT INFORMATION
  Report Type: 
  Country: None (occurrence: None)
  Receive Date: 20070426
  Receipt Date: 20070426
  Transmission Date: 20071010
  Serious: Yes (Other)
  Sender: FDA-Public Use
  Company Number: None

PATIENT
  Age: 52 Year
  Sex: Male
  Weight: 87.1 kg

DRUGS (5)
  1. SIMVASTATIN [Suspect]
  2. RAMIPRIL [Concomitant]
  3. OMEPRAZOLE [Concomitant]
  4. GLYBURIDE [Concomitant]
  5. SALICYLIC ACID 17%/FLEXIBLE COLLODION [Concomitant]

REACTIONS (1)
  - MYALGIA [None]
